FAERS Safety Report 11643854 (Version 1)
Quarter: 2015Q4

REPORT INFORMATION
  Report Type: Spontaneous
  Country: None (occurrence: None)
  Receive Date: 20151019
  Receipt Date: 20151019
  Transmission Date: 20160304
  Serious: Yes (Other)
  Sender: FDA-Public Use
  Company Number: None

PATIENT
  Age: 62 Year
  Sex: Female
  Weight: 61.24 kg

DRUGS (8)
  1. CALCIUM [Concomitant]
     Active Substance: CALCIUM
  2. GABAPENTIN GABAPENTIN 100 [Suspect]
     Active Substance: GABAPENTIN
     Indication: NEURALGIA
     Dosage: 4 PILLS
     Route: 048
  3. BUPROPION. [Concomitant]
     Active Substance: BUPROPION
  4. GLUCOSAMINE [Concomitant]
     Active Substance: GLUCOSAMINE
  5. LEVOTHYROXIN [Concomitant]
     Active Substance: LEVOTHYROXINE
  6. CALCIUM SUPPLEMENT [Concomitant]
     Active Substance: CALCIUM
  7. VICODIN [Concomitant]
     Active Substance: ACETAMINOPHEN\HYDROCODONE BITARTRATE
  8. MULTIVITAMIN [Concomitant]
     Active Substance: VITAMINS

REACTIONS (1)
  - Somnambulism [None]

NARRATIVE: CASE EVENT DATE: 20151013
